FAERS Safety Report 9811691 (Version 2)
Quarter: 2014Q4

REPORT INFORMATION
  Report Type: Spontaneous
  Country: US (occurrence: US)
  Receive Date: 20140110
  Receipt Date: 20141229
  Transmission Date: 20150529
  Serious: Yes (Other)
  Sender: FDA-Public Use
  Company Number: US-SANOFI-AVENTIS-2013SA045079

PATIENT
  Age: 61 Year
  Sex: Male

DRUGS (5)
  1. PLAVIX [Suspect]
     Active Substance: CLOPIDOGREL BISULFATE
     Indication: CEREBROVASCULAR ACCIDENT
     Route: 065
     Dates: start: 20080505, end: 20120519
  2. CARAFATE [Concomitant]
     Active Substance: SUCRALFATE
     Indication: DYSPEPSIA
  3. PLAVIX [Suspect]
     Active Substance: CLOPIDOGREL BISULFATE
     Indication: PROPHYLAXIS
     Route: 065
     Dates: start: 20080505, end: 20120519
  4. CARAFATE [Concomitant]
     Active Substance: SUCRALFATE
     Indication: DYSPEPSIA
  5. ASPIRIN. [Suspect]
     Active Substance: ASPIRIN
     Route: 065
     Dates: end: 201205

REACTIONS (1)
  - Gastrointestinal haemorrhage [Not Recovered/Not Resolved]

NARRATIVE: CASE EVENT DATE: 20120519
